FAERS Safety Report 5456475-2 (Version None)
Quarter: 2007Q3

REPORT INFORMATION
  Report Type: 
  Country: None (occurrence: None)
  Receive Date: 20070918
  Receipt Date: 20070910
  Transmission Date: 20080115
  Serious: Yes (Other)
  Sender: FDA-Public Use
  Company Number: US-PURDUE-USA_2007_0028021

PATIENT
  Sex: Male
  Weight: 136 kg

DRUGS (2)
  1. OXYCONTIN [Suspect]
     Indication: BACK PAIN
     Dosage: 20 MG, SEE TEXT
     Route: 048
     Dates: start: 20010124, end: 20051102
  2. ANTIHYPERTENSIVES [Concomitant]
     Indication: DRUG USE FOR UNKNOWN INDICATION
     Dosage: UNK MG, UNK
     Route: 048

REACTIONS (7)
  - CARDIAC DISORDER [None]
  - CHEST PAIN [None]
  - CORONARY ARTERY OCCLUSION [None]
  - DRUG DEPENDENCE [None]
  - NERVOUSNESS [None]
  - PAIN IN EXTREMITY [None]
  - THROMBOSIS [None]
